FAERS Safety Report 6194099-2 (Version None)
Quarter: 2009Q2

REPORT INFORMATION
  Report Type: 
  Country: None (occurrence: None)
  Receive Date: 20090518
  Receipt Date: 20081209
  Transmission Date: 20091009
  Serious: Yes (Other)
  Sender: FDA-Public Use
  Company Number: US-BAXTER-2008BH013833

PATIENT
  Age: 24 Year
  Sex: Female

DRUGS (3)
  1. IGIV, UNSPECIFIED PRODUCT [Suspect]
     Indication: WEGENER'S GRANULOMATOSIS
     Route: 042
     Dates: start: 20060801, end: 20060101
  2. IGIV, UNSPECIFIED PRODUCT [Suspect]
     Route: 042
     Dates: start: 20060101, end: 20060101
  3. PREDNISONE [Suspect]
     Indication: WEGENER'S GRANULOMATOSIS
     Route: 048
     Dates: start: 20060801, end: 20060101

REACTIONS (1)
  - AMNIOTIC FLUID VOLUME DECREASED [None]
